FAERS Safety Report 8154705 (Version 10)
Quarter: 2014Q1

REPORT INFORMATION
  Report Type: Report from Study
  Country: BR (occurrence: BR)
  Receive Date: 20110923
  Receipt Date: 20140210
  Transmission Date: 20141002
  Serious: Yes (Hospitalization)
  Sender: FDA-Public Use
  Company Number: BR-GLAXOSMITHKLINE-B0710889C

PATIENT
  Age: 30 Year
  Sex: Female
  Weight: 84.5 kg

DRUGS (5)
  1. RETIGABINE [Suspect]
     Indication: PARTIAL SEIZURES
     Route: 048
     Dates: start: 20070525, end: 20110915
  2. ESOMEPRAZOLE [Concomitant]
     Dosage: 40MG PER DAY
     Dates: start: 20110824, end: 20110901
  3. TELMISARTAN [Concomitant]
     Indication: HYPERTENSION
     Dosage: 40MG PER DAY
     Dates: start: 20110828, end: 20110908
  4. DAPTOMYCIN [Concomitant]
     Indication: PYREXIA
     Dosage: 500MG PER DAY
     Dates: start: 20110901, end: 20110901
  5. ZOSYN [Concomitant]
     Indication: PYREXIA
     Dosage: 18G PER DAY
     Dates: start: 20110901, end: 20110901

REACTIONS (1)
  - Idiosyncratic drug reaction [Recovered/Resolved]
